FAERS Safety Report 8385692-7 (Version None)
Quarter: 2012Q2

REPORT INFORMATION
  Report Type: 
  Country: None (occurrence: None)
  Receive Date: 20120523
  Receipt Date: 20120510
  Transmission Date: 20120825
  Serious: Yes (Other)
  Sender: FDA-Public Use
  Company Number: 12-376

PATIENT
  Age: 43 Year
  Sex: Male

DRUGS (5)
  1. SULPIRIDE [Concomitant]
  2. LAMOTRIGINE [Concomitant]
  3. IBUPROFEN [Suspect]
     Indication: BACK PAIN
  4. ACETAMINOPHEN AND CODEINE PHOSPHATE [Suspect]
     Indication: BACK PAIN
  5. ZOPONEX (CLOSAPINE) [Suspect]
     Dates: start: 20010701, end: 20050630

REACTIONS (2)
  - NEUTROPENIA [None]
  - WHITE BLOOD CELL COUNT DECREASED [None]
